FAERS Safety Report 4708261-6 (Version None)
Quarter: 2005Q3

REPORT INFORMATION
  Report Type: 
  Country: None (occurrence: None)
  Receive Date: 20050705
  Receipt Date: 20050705
  Transmission Date: 20060218
  Serious: Yes (Other)
  Sender: FDA-Public Use
  Company Number: None

PATIENT
  Sex: Male
  Weight: 91.8 kg

DRUGS (2)
  1. CISPLATIN [Suspect]
     Indication: NEOPLASM MALIGNANT
     Dosage: 100 MG/M2  ON DAYS 1,22 AND 43
     Dates: start: 20050519
  2. RADIATION [Suspect]

REACTIONS (23)
  - ACTIVATED PARTIAL THROMBOPLASTIN TIME PROLONGED [None]
  - ANURIA [None]
  - BLOOD CREATINE PHOSPHOKINASE INCREASED [None]
  - BLOOD CREATININE INCREASED [None]
  - BLOOD UREA INCREASED [None]
  - BODY TEMPERATURE INCREASED [None]
  - CHILLS [None]
  - DIARRHOEA [None]
  - DYSPHAGIA [None]
  - ERYTHEMA [None]
  - HEART RATE INCREASED [None]
  - HYPOTENSION [None]
  - MUCOSAL INFLAMMATION [None]
  - NAUSEA [None]
  - PLATELET COUNT DECREASED [None]
  - POLYURIA [None]
  - PROTHROMBIN TIME PROLONGED [None]
  - RASH [None]
  - RESPIRATORY RATE INCREASED [None]
  - SYNCOPE [None]
  - SYSTEMIC INFLAMMATORY RESPONSE SYNDROME [None]
  - VOMITING [None]
  - WHITE BLOOD CELL COUNT DECREASED [None]
